FAERS Safety Report 9542572 (Version 3)
Quarter: 2013Q4

REPORT INFORMATION
  Report Type: Spontaneous
  Country: US (occurrence: US)
  Receive Date: 20130923
  Receipt Date: 20131021
  Transmission Date: 20140711
  Serious: Yes (Hospitalization, Disabling)
  Sender: FDA-Public Use
  Company Number: US-009507513-1309USA006515

PATIENT
  Sex: Female

DRUGS (1)
  1. DULERA [Suspect]
     Indication: ASTHMA
     Dosage: 100/5 MICROGRAM;FREQUENCY NOT SPECIFIED
     Route: 055

REACTIONS (2)
  - Asthma [Recovering/Resolving]
  - Treatment noncompliance [Unknown]
